FAERS Safety Report 6294742-3 (Version None)
Quarter: 2009Q3

REPORT INFORMATION
  Report Type: 
  Country: None (occurrence: None)
  Receive Date: 20090803
  Receipt Date: 20090727
  Transmission Date: 20100115
  Serious: No
  Sender: FDA-Public Use
  Company Number: US-JNJFOC-20090709008

PATIENT
  Sex: Female

DRUGS (4)
  1. FENTANYL TRANSDERMAL SYSTEM [Suspect]
     Indication: FIBROMYALGIA
     Route: 062
  2. ATIVAN [Concomitant]
     Route: 048
  3. ATIVAN [Concomitant]
     Indication: FIBROMYALGIA
     Route: 048
  4. NORCO [Concomitant]
     Indication: FIBROMYALGIA
     Dosage: 10/325
     Route: 048

REACTIONS (5)
  - APPLICATION SITE IRRITATION [None]
  - DEVICE LEAKAGE [None]
  - FEELING ABNORMAL [None]
  - HEART RATE INCREASED [None]
  - WRONG TECHNIQUE IN DRUG USAGE PROCESS [None]
